FAERS Safety Report 5599372-4 (Version None)
Quarter: 2008Q1

REPORT INFORMATION
  Report Type: 
  Country: None (occurrence: None)
  Receive Date: 20080122
  Receipt Date: 20080110
  Transmission Date: 20080703
  Serious: Yes (Hospitalization)
  Sender: FDA-Public Use
  Company Number: DE-PFIZER INC-2008003830

PATIENT
  Sex: Male
  Weight: 90 kg

DRUGS (7)
  1. SUTENT [Suspect]
     Indication: RENAL CELL CARCINOMA
     Dosage: DAILY DOSE:50MG
     Route: 048
     Dates: start: 20071005, end: 20071019
  2. METOPROLOL TARTRATE [Concomitant]
  3. TORSEMIDE [Concomitant]
  4. MOXONIDINE [Concomitant]
  5. URAPIDIL [Concomitant]
  6. ESOMEPRAZOLE [Concomitant]
  7. SIMVASTATIN [Concomitant]

REACTIONS (2)
  - CARDIAC FAILURE [None]
  - RENAL FAILURE ACUTE [None]
